FAERS Safety Report 22249207 (Version 1)
Quarter: 2023Q2

REPORT INFORMATION
  Report Type: Spontaneous
  Country: US (occurrence: None)
  Receive Date: 20230421
  Receipt Date: 20230421
  Transmission Date: 20230722
  Serious: No
  Sender: FDA-Public Use
  Company Number: None

PATIENT
  Age: 70 Year
  Sex: Female
  Weight: 97.98 kg

DRUGS (1)
  1. INFLECTRA [Suspect]
     Active Substance: INFLIXIMAB-DYYB
     Indication: Psoriasis
     Dosage: OTHER FREQUENCY : WEEKS 0,2 AND 6;?
     Route: 042
     Dates: start: 202304

REACTIONS (3)
  - Cervical vertebral fracture [None]
  - Clavicle fracture [None]
  - Upper limb fracture [None]
